FAERS Safety Report 10191372 (Version 1)
Quarter: 2014Q2

REPORT INFORMATION
  Report Type: Spontaneous
  Country: PH (occurrence: PH)
  Receive Date: 20140523
  Receipt Date: 20140523
  Transmission Date: 20141212
  Serious: Yes (Hospitalization)
  Sender: FDA-Public Use
  Company Number: PH-MERCK-1405PHL010502

PATIENT
  Sex: Male

DRUGS (1)
  1. JANUVIA [Suspect]
     Dosage: 50MG, ONE TABLET ONCE A DAY
     Route: 048

REACTIONS (2)
  - Dyspnoea [Unknown]
  - Cardiac disorder [Unknown]
